FAERS Safety Report 13136206 (Version 2)
Quarter: 2017Q2

REPORT INFORMATION
  Report Type: Spontaneous
  Country: US (occurrence: US)
  Receive Date: 20170121
  Receipt Date: 20170525
  Transmission Date: 20170830
  Serious: No
  Sender: FDA-Public Use
  Company Number: US-TEVA-732649ACC

PATIENT
  Age: 38 Year
  Sex: Male

DRUGS (6)
  1. KLONOPIN [Concomitant]
     Active Substance: CLONAZEPAM
  2. LEXAPRO [Concomitant]
     Active Substance: ESCITALOPRAM OXALATE
  3. AMPHETAMINE [Concomitant]
     Active Substance: AMPHETAMINE
  4. COPAXONE [Suspect]
     Active Substance: GLATIRAMER ACETATE
     Dosage: UNKOWN STRENGTH
     Route: 065
     Dates: start: 201508
  5. COPAXONE [Suspect]
     Active Substance: GLATIRAMER ACETATE
     Indication: MULTIPLE SCLEROSIS
     Route: 058
     Dates: start: 20151204
  6. NORCO [Concomitant]
     Active Substance: ACETAMINOPHEN\HYDROCODONE BITARTRATE

REACTIONS (1)
  - Fall [Unknown]

NARRATIVE: CASE EVENT DATE: 201610
